FAERS Safety Report 5599668-6 (Version None)
Quarter: 2008Q1

REPORT INFORMATION
  Report Type: 
  Country: None (occurrence: None)
  Receive Date: 20080123
  Receipt Date: 20080111
  Transmission Date: 20080703
  Serious: Yes (Death, Other)
  Sender: FDA-Public Use
  Company Number: FR-BRISTOL-MYERS SQUIBB COMPANY-14044077

PATIENT
  Age: 11 Year
  Sex: Male

DRUGS (3)
  1. HOLOXAN [Suspect]
     Indication: CHONDROSARCOMA
     Route: 042
     Dates: start: 20070901, end: 20071101
  2. ADRIAMYCIN PFS [Suspect]
     Dates: start: 20070901, end: 20071101
  3. UROMITEXAN [Concomitant]
     Route: 042
     Dates: start: 20070901, end: 20071101

REACTIONS (6)
  - APLASIA [None]
  - APRAXIA [None]
  - GENERAL PHYSICAL HEALTH DETERIORATION [None]
  - MUCOSAL INFLAMMATION [None]
  - MULTI-ORGAN FAILURE [None]
  - WALKING DISABILITY [None]
